FAERS Safety Report 6635634-7 (Version None)
Quarter: 2010Q1

REPORT INFORMATION
  Report Type: 
  Country: None (occurrence: None)
  Receive Date: 20100315
  Receipt Date: 20100308
  Transmission Date: 20100710
  Serious: Yes (Other)
  Sender: FDA-Public Use
  Company Number: PT-ROCHE-684940

PATIENT
  Age: 55 Year
  Sex: Male

DRUGS (1)
  1. INTERFERON ALFA [Suspect]
     Indication: RENAL CELL CARCINOMA
     Route: 065
     Dates: start: 20040601, end: 20060601

REACTIONS (2)
  - DISEASE PROGRESSION [None]
  - RESPIRATORY DISORDER [None]
